FAERS Safety Report 8920679 (Version 2)
Quarter: 2012Q4

REPORT INFORMATION
  Report Type: Report from Study
  Country: AU (occurrence: AU)
  Receive Date: 20121122
  Receipt Date: 20121211
  Transmission Date: 20130627
  Serious: Yes (Hospitalization)
  Sender: FDA-Public Use
  Company Number: AU-AMGEN-AUSCT2012058048

PATIENT
  Age: 63 Year
  Sex: Male

DRUGS (6)
  1. PANITUMUMAB [Suspect]
     Indication: COLORECTAL CANCER METASTATIC
     Dosage: 340 mg, UNK
     Route: 042
     Dates: start: 20120625, end: 20120806
  2. IRINOTECAN [Concomitant]
     Indication: COLORECTAL CANCER METASTATIC
     Dosage: 280 mg, UNK
     Route: 042
     Dates: start: 20120625, end: 20120806
  3. DEXAMETHASONE [Concomitant]
     Dosage: 4 mg, qd
     Route: 048
     Dates: start: 20120716
  4. BIOTENE [Concomitant]
     Indication: MUCOSAL INFLAMMATION
     Dosage: UNK UNK, qd
     Route: 061
     Dates: start: 20120707
  5. CODEINE PHOSPHATE [Concomitant]
     Indication: DIARRHOEA
     Dosage: UNK
     Dates: start: 20120806
  6. ASPIRIN [Concomitant]

REACTIONS (1)
  - Bile duct obstruction [Unknown]
